FAERS Safety Report 18638865 (Version 1)
Quarter: 2020Q4

REPORT INFORMATION
  Report Type: Spontaneous
  Country: US (occurrence: US)
  Receive Date: 20201218
  Receipt Date: 20201218
  Transmission Date: 20210114
  Serious: No
  Sender: FDA-Public Use
  Company Number: US-ROCHE-2589753

PATIENT

DRUGS (1)
  1. GAZYVA [Suspect]
     Active Substance: OBINUTUZUMAB
     Indication: CHRONIC LYMPHOCYTIC LEUKAEMIA
     Dosage: 100 MG INTRAVENOUS INFUSION ON DAY 1 OF CYCLE 1
     Route: 042
     Dates: start: 20200422

REACTIONS (3)
  - Blood phosphorus increased [Unknown]
  - Blood potassium increased [Unknown]
  - Product storage error [Unknown]

NARRATIVE: CASE EVENT DATE: 20200422
